FAERS Safety Report 14979923 (Version 1)
Quarter: 2018Q2

REPORT INFORMATION
  Report Type: Spontaneous
  Country: IT (occurrence: IT)
  Receive Date: 20180606
  Receipt Date: 20180606
  Transmission Date: 20180711
  Serious: Yes (Hospitalization)
  Sender: FDA-Public Use
  Company Number: IT-MYLANLABS-2018M1037000

PATIENT
  Age: 52 Year
  Sex: Female
  Weight: 70 kg

DRUGS (3)
  1. CITALOPRAM [Suspect]
     Active Substance: CITALOPRAM HYDROBROMIDE
     Dosage: 400 MG, ONCE/SINGLE
     Route: 048
     Dates: start: 20160928, end: 20160928
  2. ETILTOX [Concomitant]
     Active Substance: DISULFIRAM
     Indication: ALCOHOLISM
     Route: 048
  3. CITALOPRAM [Suspect]
     Active Substance: CITALOPRAM HYDROBROMIDE
     Indication: DEPRESSION
     Dosage: UNK

REACTIONS (3)
  - Intentional product misuse [Recovering/Resolving]
  - Intentional self-injury [Recovering/Resolving]
  - Poisoning [Recovering/Resolving]

NARRATIVE: CASE EVENT DATE: 20160928
